FAERS Safety Report 5269436-3 (Version None)
Quarter: 2007Q1

REPORT INFORMATION
  Report Type: 
  Country: None (occurrence: None)
  Receive Date: 20070320
  Receipt Date: 20070312
  Transmission Date: 20070707
  Serious: Yes (Death)
  Sender: FDA-Public Use
  Company Number: GB-BRACCO-BRO-011562

PATIENT
  Age: 75 Year
  Sex: Female
  Weight: 70 kg

DRUGS (1)
  1. NIOPAM [Suspect]
     Route: 042
     Dates: start: 20060601, end: 20060601

REACTIONS (1)
  - ANAPHYLACTIC REACTION [None]
